FAERS Safety Report 15736889 (Version 1)
Quarter: 2018Q4

REPORT INFORMATION
  Report Type: Spontaneous
  Country: US (occurrence: US)
  Receive Date: 20181204
  Receipt Date: 20181204
  Transmission Date: 20190205
  Serious: Yes (Hospitalization)
  Sender: FDA-Public Use
  Company Number: None

PATIENT
  Age: 28 Year
  Sex: Female

DRUGS (18)
  1. VITAMIN D 50000 [Concomitant]
  2. LEXAPRO [Concomitant]
     Active Substance: ESCITALOPRAM OXALATE
  3. PANCREASE MT [Concomitant]
     Active Substance: PANCRELIPASE
  4. ZYVOX [Concomitant]
     Active Substance: LINEZOLID
  5. GLUCAGON. [Concomitant]
     Active Substance: GLUCAGON
  6. PROAIR HFA [Concomitant]
     Active Substance: ALBUTEROL SULFATE
  7. NOVOLOG [Concomitant]
     Active Substance: INSULIN ASPART
  8. BREO ELLIPTA [Concomitant]
     Active Substance: FLUTICASONE FUROATE\VILANTEROL TRIFENATATE
  9. MEPHYTON [Concomitant]
     Active Substance: PHYTONADIONE
  10. TOUJEO SOLO [Concomitant]
  11. LANTUS [Concomitant]
     Active Substance: INSULIN GLARGINE
  12. ALBUTEROL. [Concomitant]
     Active Substance: ALBUTEROL
  13. ASMANEX [Concomitant]
     Active Substance: MOMETASONE FUROATE
  14. PULMOZYME [Concomitant]
     Active Substance: DORNASE ALFA
  15. SYMDEKO [Suspect]
     Active Substance: IVACAFTOR\TEZACAFTOR
     Indication: CYSTIC FIBROSIS
     Route: 048
     Dates: start: 20180517
  16. CONTOUR [Concomitant]
  17. ELIQUIS [Concomitant]
     Active Substance: APIXABAN
  18. VITAMIN D 400 [Concomitant]

REACTIONS (1)
  - Hospitalisation [None]

NARRATIVE: CASE EVENT DATE: 20181107
